FAERS Safety Report 23773214 (Version 1)
Quarter: 2024Q2

REPORT INFORMATION
  Report Type: Other
  Country: US (occurrence: US)
  Receive Date: 20240423
  Receipt Date: 20240423
  Transmission Date: 20240716
  Serious: Yes (Life-Threatening, Hospitalization, Other)
  Sender: FDA-Public Use
  Company Number: US-Omnivium Pharmaceuticals LLC-2155907

PATIENT
  Age: 42 Year
  Sex: Male

DRUGS (1)
  1. NUMBRINO [Suspect]
     Active Substance: COCAINE HYDROCHLORIDE
     Indication: Product used for unknown indication
     Route: 065

REACTIONS (5)
  - Septic shock [Unknown]
  - Toxicity to various agents [Unknown]
  - Muscle injury [Unknown]
  - Acute kidney injury [Not Recovered/Not Resolved]
  - Cardiac arrest [Unknown]
